FAERS Safety Report 15625865 (Version 4)
Quarter: 2019Q1

REPORT INFORMATION
  Report Type: Spontaneous
  Country: US (occurrence: US)
  Receive Date: 20181116
  Receipt Date: 20190227
  Transmission Date: 20190417
  Serious: Yes (Hospitalization, Other)
  Sender: FDA-Public Use
  Company Number: US-ABBVIE-18S-163-2557796-00

PATIENT
  Age: 70 Year
  Sex: Male
  Weight: 73.55 kg

DRUGS (2)
  1. PLAVIX [Concomitant]
     Active Substance: CLOPIDOGREL BISULFATE
     Indication: ANTICOAGULANT THERAPY
  2. LUPRON [Suspect]
     Active Substance: LEUPROLIDE ACETATE
     Indication: PROSTATE CANCER
     Route: 030
     Dates: start: 201806, end: 201806

REACTIONS (6)
  - Complication associated with device [Not Recovered/Not Resolved]
  - Cervical vertebral fracture [Recovering/Resolving]
  - Bone disorder [Unknown]
  - Fall [Recovered/Resolved]
  - Bone loss [Not Recovered/Not Resolved]
  - Mobility decreased [Not Recovered/Not Resolved]

NARRATIVE: CASE EVENT DATE: 201810
